FAERS Safety Report 6347382-1 (Version None)
Quarter: 2009Q3

REPORT INFORMATION
  Report Type: 
  Country: None (occurrence: None)
  Receive Date: 20090908
  Receipt Date: 20090908
  Transmission Date: 20100115
  Serious: Yes (Other)
  Sender: FDA-Public Use
  Company Number: None

PATIENT
  Sex: Female
  Weight: 53.6 kg

DRUGS (1)
  1. LEVAQUIN [Suspect]
     Indication: PNEUMONIA
     Dosage: 750 MG 1 TIME/DAY
     Dates: start: 20090903, end: 20090906

REACTIONS (3)
  - BACK PAIN [None]
  - EYELID OEDEMA [None]
  - INSOMNIA [None]
